FAERS Safety Report 6498921-1 (Version None)
Quarter: 2009Q4

REPORT INFORMATION
  Report Type: 
  Country: None (occurrence: None)
  Receive Date: 20091127
  Receipt Date: 20081104
  Transmission Date: 20100525
  Serious: No
  Sender: FDA-Public Use
  Company Number: 280930

PATIENT
  Age: 67 Year
  Sex: Female

DRUGS (1)
  1. NOVOLOG [Suspect]
     Indication: INSULIN-REQUIRING TYPE 2 DIABETES MELLITUS
     Dosage: 10 IU, BID, SUBCUTANEOUS
     Route: 058
     Dates: start: 20091028

REACTIONS (2)
  - BLOOD GLUCOSE FLUCTUATION [None]
  - INSOMNIA [None]
